FAERS Safety Report 14917437 (Version 1)
Quarter: 2018Q2

REPORT INFORMATION
  Report Type: Report from Study
  Country: US (occurrence: US)
  Receive Date: 20180521
  Receipt Date: 20180521
  Transmission Date: 20180711
  Serious: No
  Sender: FDA-Public Use
  Company Number: US-ROCHE-2122167

PATIENT
  Age: 55 Year
  Sex: Female
  Weight: 79.45 kg

DRUGS (11)
  1. GABAPENTIN. [Concomitant]
     Active Substance: GABAPENTIN
  2. IBUPROFEN. [Concomitant]
     Active Substance: IBUPROFEN
  3. FLEXERIL [Concomitant]
     Active Substance: CYCLOBENZAPRINE HYDROCHLORIDE
  4. PREMARIN [Concomitant]
     Active Substance: ESTROGENS, CONJUGATED
  5. OCREVUS [Suspect]
     Active Substance: OCRELIZUMAB
     Indication: RELAPSING-REMITTING MULTIPLE SCLEROSIS
     Route: 042
     Dates: start: 20180405
  6. BACLOFEN. [Concomitant]
     Active Substance: BACLOFEN
  7. OCREVUS [Suspect]
     Active Substance: OCRELIZUMAB
     Dosage: SECOND HALF OF THE FIRST INFUSIONS
     Route: 042
     Dates: start: 20180419
  8. PREVACID [Concomitant]
     Active Substance: LANSOPRAZOLE
  9. OXYBUTIN [Concomitant]
     Active Substance: OXYBUTYNIN
  10. PROZAC [Concomitant]
     Active Substance: FLUOXETINE HYDROCHLORIDE
  11. LEVOTHYROXINE. [Concomitant]
     Active Substance: LEVOTHYROXINE

REACTIONS (10)
  - Foot deformity [Unknown]
  - Malaise [Unknown]
  - Stress [Unknown]
  - Cough [Unknown]
  - Therapy non-responder [Unknown]
  - Muscle spasms [Unknown]
  - Muscular weakness [Unknown]
  - Ill-defined disorder [Unknown]
  - Laryngitis [Unknown]
  - Bronchitis [Recovering/Resolving]

NARRATIVE: CASE EVENT DATE: 20180423
